FAERS Safety Report 13312823 (Version 1)
Quarter: 2017Q1

REPORT INFORMATION
  Report Type: Spontaneous
  Country: CO (occurrence: CO)
  Receive Date: 20170309
  Receipt Date: 20170309
  Transmission Date: 20170428
  Serious: Yes (Hospitalization, Other)
  Sender: FDA-Public Use
  Company Number: CO-GLAXOSMITHKLINE-CO2016163091

PATIENT
  Age: 61 Year
  Sex: Male

DRUGS (6)
  1. LAMOTRIGINE. [Suspect]
     Active Substance: LAMOTRIGINE
     Indication: SEIZURE
  2. ATORVASTATIN [Concomitant]
     Active Substance: ATORVASTATIN
  3. NIFEDIPINE. [Concomitant]
     Active Substance: NIFEDIPINE
  4. LOSARTAN. [Concomitant]
     Active Substance: LOSARTAN
  5. VALPROIC ACID. [Concomitant]
     Active Substance: VALPROIC ACID
     Dates: start: 2014
  6. METOPROLOL. [Concomitant]
     Active Substance: METOPROLOL

REACTIONS (3)
  - Encephalopathy [Recovering/Resolving]
  - Drug-induced liver injury [Recovered/Resolved]
  - Acute hepatic failure [Recovering/Resolving]

NARRATIVE: CASE EVENT DATE: 201501
